FAERS Safety Report 8023380-7 (Version None)
Quarter: 2012Q1

REPORT INFORMATION
  Report Type: 
  Country: None (occurrence: None)
  Receive Date: 20120104
  Receipt Date: 20111219
  Transmission Date: 20120608
  Serious: Yes (Hospitalization, Other)
  Sender: FDA-Public Use
  Company Number: GB-GILEAD-2011-0048323

PATIENT

DRUGS (2)
  1. HEPSERA [Suspect]
     Indication: HEPATITIS B
     Dosage: 100 MG, QD
     Route: 048
     Dates: start: 20050425
  2. HEPSERA [Suspect]
     Dosage: 100MG PER DAY
     Route: 048
     Dates: start: 20050425

REACTIONS (3)
  - LACTIC ACIDOSIS [None]
  - FANCONI SYNDROME [None]
  - RENAL IMPAIRMENT [None]
